FAERS Safety Report 18118666 (Version 1)
Quarter: 2020Q3

REPORT INFORMATION
  Report Type: Spontaneous
  Country: US (occurrence: US)
  Receive Date: 20200806
  Receipt Date: 20200806
  Transmission Date: 20201103
  Serious: No
  Sender: FDA-Public Use
  Company Number: US-PFIZER INC-2020296851

PATIENT
  Age: 59 Year
  Sex: Female

DRUGS (1)
  1. IBRANCE [Suspect]
     Active Substance: PALBOCICLIB
     Indication: BREAST CANCER FEMALE
     Dosage: 125 MG, CYCLIC (DAILY, TAKE ON DAYS 1 TO 21, REST FOR 7 DAYS WITH A 28 DAY TREATMENT CYCLE IN TOTAL)
     Route: 048
     Dates: start: 201910

REACTIONS (1)
  - Nausea [Recovering/Resolving]
